FAERS Safety Report 10379382 (Version 3)
Quarter: 2014Q3

REPORT INFORMATION
  Report Type: Spontaneous
  Country: FR (occurrence: FR)
  Receive Date: 20140812
  Receipt Date: 20140930
  Transmission Date: 20150326
  Serious: Yes (Life-Threatening, Hospitalization)
  Sender: FDA-Public Use
  Company Number: FR-PFIZER INC-2014222374

PATIENT
  Age: 84 Year
  Sex: Female

DRUGS (12)
  1. TOPALGIC [Concomitant]
     Active Substance: TRAMADOL
     Dosage: 100 MG, DAILY
     Route: 048
     Dates: start: 20140709, end: 20140710
  2. DUPHALAC [Concomitant]
     Active Substance: LACTULOSE
     Dosage: UNK
     Route: 048
  3. SOLU-MEDROL [Concomitant]
     Active Substance: METHYLPREDNISOLONE SODIUM SUCCINATE
     Dosage: 40 MG, DAILY
     Route: 048
     Dates: start: 20140707, end: 20140713
  4. NEBIVOLOL [Concomitant]
     Active Substance: NEBIVOLOL
     Dosage: 5 MG, DAILY
     Route: 048
  5. PERFALGAN [Concomitant]
     Active Substance: ACETAMINOPHEN
     Dosage: UNK
     Route: 048
  6. DUPHALAC [Concomitant]
     Active Substance: LACTULOSE
     Dosage: UNK
     Route: 048
     Dates: end: 201407
  7. INEXIUM [Concomitant]
     Active Substance: ESOMEPRAZOLE
     Dosage: 20 MG, DAILY
     Route: 048
     Dates: start: 20140709
  8. LYRICA [Suspect]
     Active Substance: PREGABALIN
     Dosage: UNK
     Route: 048
     Dates: start: 20140708, end: 20140711
  9. LASILIX [Concomitant]
     Active Substance: FUROSEMIDE
     Dosage: 40 MG, 2 DOSAGE FORMS (DFS) DAILY
     Route: 048
  10. ALDACTONE [Concomitant]
     Active Substance: SPIRONOLACTONE
     Dosage: 50 MG, DAILY
     Route: 048
     Dates: end: 20140710
  11. PREVISCAN [Concomitant]
     Active Substance: FLUINDIONE
     Dosage: UNK
     Route: 048
  12. SOLU-MEDROL [Concomitant]
     Active Substance: METHYLPREDNISOLONE SODIUM SUCCINATE
     Dosage: UNK
     Route: 048

REACTIONS (2)
  - Hyperkalaemia [Not Recovered/Not Resolved]
  - Renal failure acute [Recovered/Resolved]

NARRATIVE: CASE EVENT DATE: 20140711
